FAERS Safety Report 13080971 (Version 1)
Quarter: 2017Q1

REPORT INFORMATION
  Report Type: Spontaneous
  Country: US (occurrence: US)
  Receive Date: 20170103
  Receipt Date: 20170103
  Transmission Date: 20170428
  Serious: No
  Sender: FDA-Public Use
  Company Number: US-BAUSCH-BL-2016-024431

PATIENT
  Sex: Male

DRUGS (2)
  1. XENAZINE [Suspect]
     Active Substance: TETRABENAZINE
     Indication: OBSESSIVE-COMPULSIVE DISORDER
     Route: 048
     Dates: start: 20160816
  2. XENAZINE [Suspect]
     Active Substance: TETRABENAZINE
     Indication: ILLNESS ANXIETY DISORDER

REACTIONS (2)
  - Off label use [Unknown]
  - Depression [Unknown]
